FAERS Safety Report 17162283 (Version 1)
Quarter: 2019Q4

REPORT INFORMATION
  Report Type: Spontaneous
  Country: SE (occurrence: SE)
  Receive Date: 20191217
  Receipt Date: 20191217
  Transmission Date: 20200122
  Serious: Yes (Disabling)
  Sender: FDA-Public Use
  Company Number: SE-TEVA-2019-SE-1151350

PATIENT
  Age: 70 Year
  Sex: Male

DRUGS (9)
  1. NAVELBINE [Suspect]
     Active Substance: VINORELBINE TARTRATE
     Indication: ADJUVANT THERAPY
     Dosage: DOSAGE 25 MG/M2
     Route: 042
     Dates: start: 20160405, end: 20160517
  2. LASIX [Concomitant]
     Active Substance: FUROSEMIDE
  3. SIMVASTATIN. [Concomitant]
     Active Substance: SIMVASTATIN
  4. CARBOPLATIN. [Suspect]
     Active Substance: CARBOPLATIN
     Indication: ADJUVANT THERAPY
     Dosage: DOSAGE AUC5
     Route: 042
     Dates: start: 20160405, end: 20160517
  5. DAONIL [Concomitant]
     Active Substance: GLYBURIDE
  6. TROMBYL [Concomitant]
     Active Substance: ASPIRIN
  7. TENORMIN [Concomitant]
     Active Substance: ATENOLOL
  8. METFORMIN [Concomitant]
     Active Substance: METFORMIN HYDROCHLORIDE
  9. ENALAPRIL [Concomitant]
     Active Substance: ENALAPRIL

REACTIONS (1)
  - Tooth loss [Not Recovered/Not Resolved]

NARRATIVE: CASE EVENT DATE: 20170501
